FAERS Safety Report 8488734-3 (Version None)
Quarter: 2012Q3

REPORT INFORMATION
  Report Type: 
  Country: None (occurrence: None)
  Receive Date: 20120705
  Receipt Date: 20120626
  Transmission Date: 20120928
  Serious: Yes (Other)
  Sender: FDA-Public Use
  Company Number: MX-SANOFI-AVENTIS-2012SA045830

PATIENT
  Age: 35 Year
  Sex: Female

DRUGS (1)
  1. ENOXAPARIN SODIUM [Suspect]
     Indication: PROPHYLAXIS
     Route: 058
     Dates: start: 20101101, end: 20101201

REACTIONS (3)
  - ABORTION SPONTANEOUS [None]
  - RETAINED PRODUCTS OF CONCEPTION [None]
  - MATERNAL EXPOSURE DURING PREGNANCY [None]
